FAERS Safety Report 9346690 (Version 1)
Quarter: 2013Q2

REPORT INFORMATION
  Report Type: Spontaneous
  Country: CA (occurrence: CA)
  Receive Date: 20130613
  Receipt Date: 20130613
  Transmission Date: 20140414
  Serious: Yes (Other)
  Sender: FDA-Public Use
  Company Number: CA-AMGEN-CANSP2013040824

PATIENT
  Age: 57 Year
  Sex: Female
  Weight: 81.63 kg

DRUGS (7)
  1. PROLIA [Suspect]
     Indication: PRODUCT USED FOR UNKNOWN INDICATION
     Dosage: 60 MG, 1 DAY
     Route: 058
  2. DOMPERIDONE [Concomitant]
  3. MICARDIS PLUS [Concomitant]
  4. SUCRALFATE [Concomitant]
  5. SYMBICORT TU [Concomitant]
  6. SYNTHYROID [Concomitant]
  7. TECTA [Concomitant]

REACTIONS (2)
  - Gastrointestinal haemorrhage [Recovered/Resolved]
  - Post procedural haemorrhage [Recovered/Resolved]
